APPROVED DRUG PRODUCT: QUZYTTIR
Active Ingredient: CETIRIZINE HYDROCHLORIDE
Strength: 10MG/ML (10MG/ML)
Dosage Form/Route: SOLUTION;INTRAVENOUS
Application: N211415 | Product #001
Applicant: JDP THERAPEUTICS LLC
Approved: Oct 4, 2019 | RLD: Yes | RS: Yes | Type: RX

PATENTS:
Patent 9180090 | Expires: Feb 11, 2030
Patent 8314083 | Expires: Feb 28, 2030
Patent 8513259 | Expires: Feb 11, 2030
Patent 8263581 | Expires: Feb 28, 2030
Patent 9119771 | Expires: Feb 11, 2030